FAERS Safety Report 6702347-2 (Version None)
Quarter: 2010Q2

REPORT INFORMATION
  Report Type: 
  Country: None (occurrence: None)
  Receive Date: 20100429
  Receipt Date: 20100405
  Transmission Date: 20101027
  Serious: Yes (Hospitalization)
  Sender: FDA-Public Use
  Company Number: US-SANOFI-AVENTIS-2010SA023939

PATIENT
  Age: 71 Year
  Sex: Male
  Weight: 87 kg

DRUGS (9)
  1. OXALIPLATIN [Suspect]
     Indication: GASTRIC CANCER
     Route: 041
     Dates: start: 20090709, end: 20090709
  2. OXALIPLATIN [Suspect]
     Route: 041
     Dates: start: 20100210, end: 20100210
  3. DOCETAXEL [Suspect]
     Indication: GASTRIC CANCER
     Route: 042
     Dates: start: 20090709, end: 20090709
  4. DOCETAXEL [Suspect]
     Route: 042
     Dates: start: 20100210, end: 20100210
  5. ALDACTONE [Concomitant]
     Route: 065
     Dates: start: 20100312
  6. COMPAZINE [Concomitant]
     Route: 065
     Dates: start: 20090709
  7. ESOMEPRAZOLE [Concomitant]
     Route: 065
     Dates: start: 20090609
  8. ZAROXOLYN [Concomitant]
     Route: 065
     Dates: start: 20100310
  9. ZOFRAN [Concomitant]
     Route: 065
     Dates: start: 20090709

REACTIONS (8)
  - ANAEMIA [None]
  - ASTHENIA [None]
  - DEEP VEIN THROMBOSIS [None]
  - DISSEMINATED INTRAVASCULAR COAGULATION [None]
  - HYPERTENSION [None]
  - OEDEMA [None]
  - PAIN IN EXTREMITY [None]
  - RENAL FAILURE ACUTE [None]
